FAERS Safety Report 8087580-2 (Version None)
Quarter: 2012Q1

REPORT INFORMATION
  Report Type: 
  Country: None (occurrence: None)
  Receive Date: 20120128
  Receipt Date: 20110525
  Transmission Date: 20120608
  Serious: No
  Sender: FDA-Public Use
  Company Number: US-ABBOTT-11P-163-0728551-00

PATIENT
  Age: 60 Year
  Sex: Female

DRUGS (9)
  1. HYDROCODONE BITARTRATE [Concomitant]
     Indication: PAIN
     Dosage: 10MG/325MG
  2. XANAX [Concomitant]
  3. ZANTAC [Concomitant]
     Indication: GASTROOESOPHAGEAL REFLUX DISEASE
  4. HUMIRA [Suspect]
     Indication: PSORIATIC ARTHROPATHY
     Dates: start: 20101101, end: 20110401
  5. XANAX [Concomitant]
     Indication: DEPRESSION
  6. XANAX [Concomitant]
     Indication: ANXIETY
  7. UNKNOWN MEDICATION [Concomitant]
     Indication: ASTHMA
     Dosage: 2 PUFFS
  8. ZANTAC [Concomitant]
  9. HYDROCHLOROTHIAZIDE [Concomitant]
     Indication: HYPERTENSION

REACTIONS (4)
  - PAIN [None]
  - SINUSITIS [None]
  - ORAL HERPES [None]
  - EYE INFECTION [None]
